FAERS Safety Report 9769168 (Version 1)
Quarter: 2013Q4

REPORT INFORMATION
  Report Type: Spontaneous
  Country: US (occurrence: None)
  Receive Date: 20131217
  Receipt Date: 20131217
  Transmission Date: 20140711
  Serious: Yes (Death, Hospitalization)
  Sender: FDA-Public Use
  Company Number: None

PATIENT
  Age: 87 Year
  Sex: Male
  Weight: 88.45 kg

DRUGS (1)
  1. VALSARTAN/HCTZ [Suspect]
     Indication: BLOOD PRESSURE
     Dates: start: 20130820, end: 20131019

REACTIONS (3)
  - Hypersensitivity [None]
  - Angioedema [None]
  - Acute respiratory failure [None]
